FAERS Safety Report 8186116-5 (Version None)
Quarter: 2012Q1

REPORT INFORMATION
  Report Type: 
  Country: None (occurrence: None)
  Receive Date: 20120301
  Receipt Date: 20120301
  Transmission Date: 20120608
  Serious: Yes (Hospitalization, Other)
  Sender: FDA-Public Use
  Company Number: DAV-AE-MTX-051

PATIENT
  Age: 54 Year
  Sex: Male
  Weight: 79.8331 kg

DRUGS (5)
  1. FOLIC ACID [Concomitant]
  2. METHOTREXATE [Suspect]
     Indication: RHEUMATOID ARTHRITIS
  3. ADALIMUMAB [Concomitant]
  4. TRAMADOL HCL [Concomitant]
  5. PREDNISONE [Concomitant]

REACTIONS (5)
  - EYE SWELLING [None]
  - PAPULE [None]
  - EYE PAIN [None]
  - HERPES OPHTHALMIC [None]
  - SWELLING FACE [None]
